FAERS Safety Report 8806497 (Version 2)
Quarter: 2013Q4

REPORT INFORMATION
  Report Type: Spontaneous
  Country: ES (occurrence: ES)
  Receive Date: 20120925
  Receipt Date: 20131105
  Transmission Date: 20140711
  Serious: Yes (Other)
  Sender: FDA-Public Use
  Company Number: ES-009507513-1209ESP008589

PATIENT
  Age: 41 Year
  Sex: Female

DRUGS (8)
  1. FOSAVANCE [Suspect]
     Indication: BONE DISORDER
     Dosage: 70 MG, UNK
     Route: 048
     Dates: start: 20120518, end: 20120608
  2. RIVOTRIL [Concomitant]
     Dosage: 2.5MG/ML QD
     Route: 048
  3. OXYBUTYNIN [Concomitant]
     Dosage: 5 MG, BID
  4. DIAZEPAM [Concomitant]
     Dosage: 5 MG, BID
  5. DUPHALAC [Concomitant]
  6. TRAMADOL HYDROCHLORIDE [Concomitant]
     Dosage: 50 MG, BID
  7. XERISTAR [Concomitant]
  8. OMEPRAZOLE [Concomitant]

REACTIONS (15)
  - Suicidal ideation [Unknown]
  - Thirst [Not Recovered/Not Resolved]
  - Hypersensitivity [Unknown]
  - Muscle contracture [Not Recovered/Not Resolved]
  - Tonsillitis [Not Recovered/Not Resolved]
  - Rash pustular [Unknown]
  - Fungal infection [Unknown]
  - Respiratory distress [Unknown]
  - Anxiety [Unknown]
  - Chest pain [Unknown]
  - Muscle contracture [Unknown]
  - Weight decreased [Not Recovered/Not Resolved]
  - Dysphagia [Not Recovered/Not Resolved]
  - Pharyngitis [Unknown]
  - Off label use [Unknown]
